FAERS Safety Report 5920030-8 (Version None)
Quarter: 2008Q4

REPORT INFORMATION
  Report Type: 
  Country: None (occurrence: None)
  Receive Date: 20081014
  Receipt Date: 20081001
  Transmission Date: 20090506
  Serious: Yes (Hospitalization)
  Sender: FDA-Public Use
  Company Number: 230142K08USA

PATIENT
  Age: 52 Year
  Sex: Male
  Weight: 96 kg

DRUGS (3)
  1. REBIF [Suspect]
     Indication: MULTIPLE SCLEROSIS
     Dosage: 44 MCG, 3 IN 1 WEEKS, SUBCUTANEOUS
     Route: 058
     Dates: start: 20060101
  2. PROVIGIL [Concomitant]
  3. NEURONTIN [Concomitant]

REACTIONS (4)
  - CORONARY ARTERY OCCLUSION [None]
  - MULTIPLE SCLEROSIS RELAPSE [None]
  - MYOCARDIAL INFARCTION [None]
  - TYPE 2 DIABETES MELLITUS [None]
